FAERS Safety Report 6404463-1 (Version None)
Quarter: 2009Q4

REPORT INFORMATION
  Report Type: 
  Country: None (occurrence: None)
  Receive Date: 20091016
  Receipt Date: 20090902
  Transmission Date: 20100525
  Serious: Yes (Hospitalization)
  Sender: FDA-Public Use
  Company Number: DE-ALEXION-A200900724

PATIENT

DRUGS (4)
  1. SOLIRIS [Suspect]
     Indication: PAROXYSMAL NOCTURNAL HAEMOGLOBINURIA
     Dosage: UNK
     Route: 042
  2. ESOMEPRAZOL                        /01479302/ [Concomitant]
  3. L-THYROXIN [Concomitant]
  4. OMEPRAZOL                          /00661201/ [Concomitant]

REACTIONS (2)
  - FACIAL BONES FRACTURE [None]
  - SUBDURAL HAEMATOMA [None]
